FAERS Safety Report 9448133 (Version 5)
Quarter: 2014Q3

REPORT INFORMATION
  Report Type: Report from Study
  Country: AU (occurrence: AU)
  Receive Date: 20130808
  Receipt Date: 20140919
  Transmission Date: 20150326
  Serious: Yes (Death, Life-Threatening, Hospitalization)
  Sender: FDA-Public Use
  Company Number: AU-BAYER-2013-074804

PATIENT
  Age: 74 Year
  Sex: Male
  Weight: 101 kg

DRUGS (15)
  1. OXYCONTIN [Concomitant]
     Active Substance: OXYCODONE HYDROCHLORIDE
     Indication: PAIN
     Dosage: 10 MG, BID
     Dates: start: 20130719, end: 20130722
  2. MORPHINE [Concomitant]
     Active Substance: MORPHINE
     Indication: PAIN
     Dosage: 5 MG, PRN
     Route: 058
     Dates: start: 20130730, end: 20130814
  3. COLOXYL WITH SENNA [Concomitant]
     Active Substance: DOCUSATE\SENNOSIDES
     Indication: PROPHYLAXIS
     Dosage: TOTAL DAILY DOSE 2 TABLETS
     Route: 048
     Dates: start: 20130520
  4. ENDONE [Concomitant]
     Active Substance: OXYCODONE HYDROCHLORIDE
     Indication: PAIN
     Dosage: 40 MG, PRN
     Dates: start: 20130718, end: 20130812
  5. MAXOLON [Concomitant]
     Active Substance: METOCLOPRAMIDE HYDROCHLORIDE
     Indication: NAUSEA
     Dosage: 10 MG, PRN
     Dates: start: 20130801, end: 20130802
  6. TAZOCIN [Concomitant]
     Active Substance: PIPERACILLIN SODIUM\TAZOBACTAM SODIUM
     Indication: CHOLECYSTITIS
     Dosage: 4.4 MG TDS
     Dates: start: 20130729, end: 20130806
  7. ONDANSETRON [Concomitant]
     Active Substance: ONDANSETRON
     Indication: NAUSEA
     Dosage: 4 MG, PRN
     Dates: start: 20130801, end: 20130801
  8. REGORAFENIB [Suspect]
     Active Substance: REGORAFENIB
     Indication: GASTROOESOPHAGEAL CANCER
     Dosage: 160 MG, QD (4 TABLETS OID)
     Route: 048
     Dates: start: 20130521, end: 20130610
  9. LACTULOSE. [Concomitant]
     Active Substance: LACTULOSE
     Indication: CONSTIPATION
     Dosage: UNK UNK, PRN
     Dates: start: 20130721, end: 20130813
  10. REGORAFENIB [Suspect]
     Active Substance: REGORAFENIB
     Indication: GASTROOESOPHAGEAL CANCER
     Dosage: 160 MG, QD (4 TABLETS OID)
     Route: 048
     Dates: end: 20130708
  11. REGORAFENIB [Suspect]
     Active Substance: REGORAFENIB
     Indication: GASTROOESOPHAGEAL CANCER
     Dosage: UNK
     Dates: end: 20130715
  12. PARACETAMOL [Concomitant]
     Active Substance: ACETAMINOPHEN
     Indication: PAIN
     Dosage: 1 G, PRN
     Dates: start: 20130719, end: 20130802
  13. TARGIN [Concomitant]
     Active Substance: NALOXONE HYDROCHLORIDE\OXYCODONE HYDROCHLORIDE
     Indication: PAIN
     Dosage: 30/15 MG BD
     Dates: start: 20130722, end: 20130802
  14. METOCLOPRAMIDE. [Concomitant]
     Active Substance: METOCLOPRAMIDE
     Dosage: 10 MG, PRN
     Route: 048
     Dates: start: 20130531
  15. MOVICOL [Concomitant]
     Active Substance: POLYETHYLENE GLYCOL 3350\POTASSIUM CHLORIDE\SODIUM BICARBONATE\SODIUM CHLORIDE
     Indication: CONSTIPATION
     Dosage: 1 BID
     Dates: start: 20130721, end: 20130806

REACTIONS (11)
  - Blood bilirubin increased [Fatal]
  - Gamma-glutamyltransferase increased [Fatal]
  - Nephrolithiasis [Not Recovered/Not Resolved]
  - Iliac vein occlusion [Recovered/Resolved]
  - Pleuritic pain [Recovered/Resolved]
  - Gastric cancer [Fatal]
  - Blood alkaline phosphatase increased [Fatal]
  - Dyspnoea [Recovered/Resolved]
  - Hepatic failure [Fatal]
  - Deep vein thrombosis [Recovered/Resolved]
  - Pulmonary embolism [Recovered/Resolved]

NARRATIVE: CASE EVENT DATE: 20130614
